FAERS Safety Report 8411527 (Version 5)
Quarter: 2013Q2

REPORT INFORMATION
  Report Type: Report from Study
  Country: NL (occurrence: NL)
  Receive Date: 20120217
  Receipt Date: 20130409
  Transmission Date: 20140414
  Serious: Yes (Death, Life-Threatening, Hospitalization, Other)
  Sender: FDA-Public Use
  Company Number: NL-GENZYME-CLOF-1001984

PATIENT
  Age: 62 Year
  Sex: Male
  Weight: 89 kg

DRUGS (3)
  1. EVOLTRA [Suspect]
     Indication: ACUTE MYELOID LEUKAEMIA
     Dosage: 20 MG, UNK, (2ND CYCLE)
     Route: 042
     Dates: start: 20110901, end: 20110905
  2. CYTARABINE [Suspect]
     Indication: ACUTE MYELOID LEUKAEMIA
     Dosage: 4000 MG, UNK, (2ND CYCLE)
     Route: 042
     Dates: start: 20110901, end: 20110906
  3. AMSACRINE [Suspect]
     Indication: ACUTE MYELOID LEUKAEMIA
     Dosage: 245 MG, UNK, (2ND CYCLE)
     Route: 042
     Dates: start: 20110904, end: 20110906

REACTIONS (5)
  - Caecitis [Unknown]
  - Respiratory failure [Unknown]
  - Cholecystitis [Fatal]
  - Multi-organ failure [Fatal]
  - Enterococcal sepsis [Fatal]
